FAERS Safety Report 10686172 (Version 11)
Quarter: 2016Q4

REPORT INFORMATION
  Report Type: Spontaneous
  Country: US (occurrence: US)
  Receive Date: 20141231
  Receipt Date: 20161019
  Transmission Date: 20170206
  Serious: No
  Sender: FDA-Public Use
  Company Number: US-GLAXOSMITHKLINE-US2014GSK044600

PATIENT
  Sex: Female

DRUGS (3)
  1. LAMICTAL [Suspect]
     Active Substance: LAMOTRIGINE
     Indication: PRODUCT USED FOR UNKNOWN INDICATION
  2. LAMICTAL [Suspect]
     Active Substance: LAMOTRIGINE
     Indication: PRODUCT USED FOR UNKNOWN INDICATION
     Dosage: 25 MG, U
     Route: 065
     Dates: start: 20081202
  3. LAMICTAL [Suspect]
     Active Substance: LAMOTRIGINE
     Dosage: 25 MG, U

REACTIONS (12)
  - Constipation [Unknown]
  - Hypersomnia [Unknown]
  - Malaise [Not Recovered/Not Resolved]
  - Sinus disorder [Unknown]
  - Frequent bowel movements [Unknown]
  - Nervousness [Not Recovered/Not Resolved]
  - Multiple allergies [Unknown]
  - Nausea [Unknown]
  - Gastric disorder [Not Recovered/Not Resolved]
  - Abdominal pain upper [Not Recovered/Not Resolved]
  - Emotional distress [Unknown]
  - Somnolence [Unknown]
